FAERS Safety Report 9967381 (Version 2)
Quarter: 2014Q1

REPORT INFORMATION
  Report Type: Report from Study
  Country: US (occurrence: US)
  Receive Date: 20140305
  Receipt Date: 20140305
  Transmission Date: 20141002
  Serious: No
  Sender: FDA-Public Use
  Company Number: US-ABBVIE-13P-163-1126223-00

PATIENT
  Age: 57 Year
  Sex: Female

DRUGS (23)
  1. HUMIRA [Suspect]
     Indication: RHEUMATOID ARTHRITIS
     Dates: start: 20130403
  2. PREDNISONE [Concomitant]
     Indication: PRODUCT USED FOR UNKNOWN INDICATION
  3. PREDNISONE [Concomitant]
     Dosage: TITRATING DOWN 1MG WEEKLY
     Dates: start: 20130902
  4. PLAQUENIL [Concomitant]
     Indication: RHEUMATOID ARTHRITIS
  5. CARTIA [Concomitant]
     Indication: BLOOD PRESSURE
  6. VASOTEC [Concomitant]
     Indication: BLOOD PRESSURE
     Dosage: 10 MG AT HOUR OF SLEEP
  7. ATENOLOL [Concomitant]
     Indication: HEART RATE INCREASED
  8. NEXIUM [Concomitant]
     Indication: GASTROOESOPHAGEAL REFLUX DISEASE
  9. ADVAIR [Concomitant]
     Indication: ASTHMA
     Dosage: 250/50 2 PUFFS TWICE A DAY
  10. ALBUTEROL [Concomitant]
     Indication: ASTHMA
     Dosage: 2 PUFFS FOUR TIMES A DAY AS NEEDED
  11. PATANASE [Concomitant]
     Indication: HYPERSENSITIVITY
     Dosage: 2 SPRAYS EACH NOSTRIL TWICE A DAY
  12. PATADAY [Concomitant]
     Indication: EYE ALLERGY
     Dosage: 1 DROP EACH EYE TWICE A DAY
  13. LOTEMAX [Concomitant]
     Indication: INFLAMMATION
     Dosage: 1 DROP EACH EYE FOUR TIMES A DAY AS NEEDED
  14. ORACEA [Concomitant]
     Indication: ROSACEA
     Dates: end: 201308
  15. VICODIN [Concomitant]
     Indication: PRODUCT USED FOR UNKNOWN INDICATION
     Dosage: 5/500 MG 1 TWICE A DAY AS NEEDED
  16. VICODIN [Concomitant]
     Dosage: 3 TIMES DAILY
  17. VITAMIN B12 [Concomitant]
     Indication: PRODUCT USED FOR UNKNOWN INDICATION
  18. FOLIC ACID [Concomitant]
     Indication: PRODUCT USED FOR UNKNOWN INDICATION
  19. VITAMIN D [Concomitant]
     Indication: PRODUCT USED FOR UNKNOWN INDICATION
  20. TUMS [Concomitant]
     Indication: BLOOD CALCIUM
     Dosage: 2 DAILY
  21. OTC EYE DROPS [Concomitant]
     Indication: PRODUCT USED FOR UNKNOWN INDICATION
  22. CLOBETASOL PROPIONATE [Concomitant]
     Indication: ECZEMA
  23. METROGEL [Concomitant]
     Indication: ROSACEA

REACTIONS (4)
  - Eye inflammation [Recovering/Resolving]
  - Hypersensitivity [Not Recovered/Not Resolved]
  - Arthralgia [Recovering/Resolving]
  - Bronchitis [Recovered/Resolved]
